FAERS Safety Report 4457740-8 (Version None)
Quarter: 2004Q3

REPORT INFORMATION
  Report Type: 
  Country: None (occurrence: None)
  Receive Date: 20040831
  Receipt Date: 20040512
  Transmission Date: 20050211
  Serious: No
  Sender: FDA-Public Use
  Company Number: FABR-10449

PATIENT
  Age: 65 Year
  Sex: Female
  Weight: 59.8748 kg

DRUGS (7)
  1. FABRAZYME [Suspect]
     Indication: FABRY'S DISEASE
     Dosage: 60 MG Q2WKS IV
     Route: 042
     Dates: start: 20031211
  2. BENADRYL [Suspect]
     Indication: PROPHYLAXIS
     Dosage: 50 MG
  3. NEXIUM [Concomitant]
  4. LISINOPRIL [Concomitant]
  5. DILTIAZEM [Concomitant]
  6. TEGRETOL [Concomitant]
  7. ASPIRIN [Concomitant]

REACTIONS (4)
  - ANOREXIA [None]
  - FLUID RETENTION [None]
  - LETHARGY [None]
  - NAUSEA [None]
